FAERS Safety Report 7441540-0 (Version None)
Quarter: 2011Q2

REPORT INFORMATION
  Report Type: 
  Country: None (occurrence: None)
  Receive Date: 20110428
  Receipt Date: 20110414
  Transmission Date: 20111010
  Serious: Yes (Hospitalization)
  Sender: FDA-Public Use
  Company Number: CA-JNJFOC-20110407265

PATIENT
  Sex: Female
  Weight: 45.5 kg

DRUGS (5)
  1. METHOTREXATE [Concomitant]
     Route: 048
  2. CELEBREX [Concomitant]
     Route: 048
  3. FOLIC ACID [Concomitant]
     Dosage: 5 DAYS/WEEK
     Route: 048
  4. REMICADE [Suspect]
     Indication: RHEUMATOID ARTHRITIS
     Route: 042
  5. CONTIN MS [Concomitant]
     Route: 065

REACTIONS (2)
  - LOCALISED INFECTION [None]
  - TOE AMPUTATION [None]
